FAERS Safety Report 19496115 (Version 1)
Quarter: 2021Q3

REPORT INFORMATION
  Report Type: Spontaneous
  Country: US (occurrence: US)
  Receive Date: 20210706
  Receipt Date: 20210706
  Transmission Date: 20211014
  Serious: Yes (Life-Threatening, Hospitalization, Other)
  Sender: FDA-Public Use
  Company Number: US-ADVANZ PHARMA-202106004792

PATIENT

DRUGS (3)
  1. PREDNISOLONE. [Suspect]
     Active Substance: PREDNISOLONE
     Dosage: UNK
     Route: 042
  2. OCTREOTIDE. [Suspect]
     Active Substance: OCTREOTIDE
     Route: 042
  3. ALBUMIN [Suspect]
     Active Substance: ALBUMIN HUMAN
     Route: 042

REACTIONS (6)
  - Depressed level of consciousness [Unknown]
  - Candida infection [Unknown]
  - Fungal peritonitis [Unknown]
  - Ascites [Unknown]
  - Acute respiratory failure [Unknown]
  - Respiratory distress [Unknown]
